FAERS Safety Report 11860663 (Version 1)
Quarter: 2015Q4

REPORT INFORMATION
  Report Type: Spontaneous
  Country: US (occurrence: US)
  Receive Date: 20151222
  Receipt Date: 20151222
  Transmission Date: 20160305
  Serious: Yes (Death, Other)
  Sender: FDA-Public Use
  Company Number: US-SMITH AND NEPHEW, INC-2015SMT00634

PATIENT
  Age: 61 Year
  Sex: Female

DRUGS (1)
  1. REGRANEX [Suspect]
     Active Substance: BECAPLERMIN
     Indication: WOUND
     Dosage: UNK, AS DIRECTED

REACTIONS (4)
  - Off label use [Unknown]
  - Vein disorder [Unknown]
  - Death [Fatal]
  - Dialysis [Unknown]

NARRATIVE: CASE EVENT DATE: 20151210
